FAERS Safety Report 8059949-3 (Version None)
Quarter: 2012Q1

REPORT INFORMATION
  Report Type: 
  Country: None (occurrence: None)
  Receive Date: 20120120
  Receipt Date: 20120113
  Transmission Date: 20120608
  Serious: Yes (Other)
  Sender: FDA-Public Use
  Company Number: PHEH2012US001244

PATIENT
  Age: 14 Year
  Sex: Female

DRUGS (1)
  1. FOCALIN XR [Suspect]
     Dosage: 15 MG, QD

REACTIONS (5)
  - SUICIDE ATTEMPT [None]
  - MIGRAINE [None]
  - HEADACHE [None]
  - INTENTIONAL OVERDOSE [None]
  - ABDOMINAL DISCOMFORT [None]
